FAERS Safety Report 5228051-8 (Version None)
Quarter: 2007Q1

REPORT INFORMATION
  Report Type: 
  Country: None (occurrence: None)
  Receive Date: 20061201
  Receipt Date: 20060915
  Transmission Date: 20070707
  Serious: Yes (Other)
  Sender: FDA-Public Use
  Company Number: US200609003682

PATIENT
  Age: 67 Year
  Sex: Male

DRUGS (1)
  1. ALIMTA [Suspect]
     Indication: DRUG USE FOR UNKNOWN INDICATION
     Dosage: 500 MG/M2, INTRAVENOUS
     Route: 042
     Dates: start: 20060906

REACTIONS (3)
  - DYSPNOEA [None]
  - LOCAL SWELLING [None]
  - RASH [None]
